FAERS Safety Report 6269306-8 (Version None)
Quarter: 2009Q3

REPORT INFORMATION
  Report Type: 
  Country: None (occurrence: None)
  Receive Date: 20090715
  Receipt Date: 20090701
  Transmission Date: 20100115
  Serious: Yes (Other)
  Sender: FDA-Public Use
  Company Number: NL-GENENTECH-286745

PATIENT
  Sex: Male

DRUGS (2)
  1. XOLAIR [Suspect]
     Indication: DRUG USE FOR UNKNOWN INDICATION
     Dosage: 300 MG, 1/MONTH
     Dates: start: 20090625
  2. XOLAIR [Suspect]
     Dosage: 375 MG, Q2W

REACTIONS (1)
  - BLOOD IMMUNOGLOBULIN E INCREASED [None]
